FAERS Safety Report 4705443-4 (Version None)
Quarter: 2005Q3

REPORT INFORMATION
  Report Type: 
  Country: None (occurrence: None)
  Receive Date: 20050701
  Receipt Date: 20050622
  Transmission Date: 20060218
  Serious: Yes (Other)
  Sender: FDA-Public Use
  Company Number: NO-GLAXOSMITHKLINE-B0386399A

PATIENT
  Age: 59 Year
  Sex: Female

DRUGS (1)
  1. SEROXAT [Suspect]

REACTIONS (15)
  - AGGRESSION [None]
  - ANXIETY [None]
  - DEPRESSION [None]
  - DISTURBANCE IN ATTENTION [None]
  - DRUG WITHDRAWAL SYNDROME [None]
  - EARLY MORNING AWAKENING [None]
  - FATIGUE [None]
  - MANIA [None]
  - MYALGIA [None]
  - MYOSITIS-LIKE SYNDROME [None]
  - NIGHT SWEATS [None]
  - PARAESTHESIA [None]
  - PRURITUS [None]
  - SEXUAL DYSFUNCTION [None]
  - TEMPERATURE REGULATION DISORDER [None]
